FAERS Safety Report 4786893-7 (Version None)
Quarter: 2005Q3

REPORT INFORMATION
  Report Type: 
  Country: None (occurrence: None)
  Receive Date: 20050929
  Receipt Date: 20050929
  Transmission Date: 20060218
  Serious: No
  Sender: FDA-Public Use
  Company Number: None

PATIENT
  Sex: Female
  Weight: 69.8539 kg

DRUGS (2)
  1. ZANAFLEX [Suspect]
     Indication: MUSCLE SPASMS
     Dosage: 4MG ONE TID
     Dates: start: 20040409
  2. ZANAFLEX [Suspect]
     Indication: PERONEAL NERVE PALSY
     Dosage: 4MG ONE TID
     Dates: start: 20040409

REACTIONS (1)
  - NO ADVERSE EFFECT [None]
